FAERS Safety Report 24183856 (Version 2)
Quarter: 2024Q3

REPORT INFORMATION
  Report Type: Spontaneous
  Country: US (occurrence: US)
  Receive Date: 20240807
  Receipt Date: 20240813
  Transmission Date: 20241017
  Serious: No
  Sender: PFIZER
  Company Number: US-PFIZER INC-202400230145

PATIENT

DRUGS (1)
  1. DEXTRAN [Suspect]
     Active Substance: DEXTRAN

REACTIONS (1)
  - Erythema [Unknown]
